FAERS Safety Report 17890496 (Version 2)
Quarter: 2020Q2

REPORT INFORMATION
  Report Type: Spontaneous
  Country: US (occurrence: US)
  Receive Date: 20200612
  Receipt Date: 20200629
  Transmission Date: 20200714
  Serious: No
  Sender: FDA-Public Use
  Company Number: US-BEH-2020118105

PATIENT
  Sex: Female

DRUGS (3)
  1. HIZENTRA [Suspect]
     Active Substance: HUMAN IMMUNOGLOBULIN G
     Indication: ASTHMA
     Dosage: 10 GRAM, QW
     Route: 058
     Dates: start: 201805
  2. LATANOPROST. [Concomitant]
     Active Substance: LATANOPROST
  3. BREO ELLIPTA [Concomitant]
     Active Substance: FLUTICASONE FUROATE\VILANTEROL TRIFENATATE

REACTIONS (5)
  - Product use in unapproved indication [Unknown]
  - Infusion site reaction [Recovered/Resolved]
  - Arthralgia [Unknown]
  - No adverse event [Unknown]
  - Infusion site pain [Unknown]
